FAERS Safety Report 9018186 (Version 1)
Quarter: 2013Q1

REPORT INFORMATION
  Report Type: Spontaneous
  Country: US (occurrence: None)
  Receive Date: 20130111
  Receipt Date: 20130111
  Transmission Date: 20140127
  Serious: Yes (Other)
  Sender: FDA-Public Use
  Company Number: None

PATIENT
  Age: 48 Year
  Sex: Female
  Weight: 68.04 kg

DRUGS (2)
  1. IC-ESCITALOPRAM [Suspect]
     Dosage: 10 MG ONCE DAILY PO
     Route: 048
     Dates: start: 20121215, end: 20130102
  2. IC-ESCITALOPRAM [Suspect]
     Dosage: 10 MG ONCE DAILY PO
     Route: 048
     Dates: start: 20121215, end: 20130102

REACTIONS (5)
  - Anxiety [None]
  - Depression [None]
  - Suicidal ideation [None]
  - Dizziness [None]
  - Product substitution issue [None]
